FAERS Safety Report 10728915 (Version 3)
Quarter: 2015Q1

REPORT INFORMATION
  Report Type: Spontaneous
  Country: US (occurrence: US)
  Receive Date: 20150122
  Receipt Date: 20150312
  Transmission Date: 20150721
  Serious: Yes (Hospitalization)
  Sender: FDA-Public Use
  Company Number: US-SA-2015SA006114

PATIENT
  Age: 62 Year
  Sex: Female

DRUGS (3)
  1. LANTUS SOLOSTAR [Suspect]
     Active Substance: INSULIN GLARGINE
     Indication: TYPE 2 DIABETES MELLITUS
     Dosage: DOSE:55 UNIT(S)
     Route: 065
     Dates: start: 2010
  2. LANTUS SOLOSTAR [Suspect]
     Active Substance: INSULIN GLARGINE
     Indication: TYPE 2 DIABETES MELLITUS
     Dosage: DOSE PER DAY :55
     Route: 065
     Dates: start: 20150128, end: 20150215
  3. SOLOSTAR [Concomitant]
     Active Substance: DEVICE

REACTIONS (3)
  - Constipation [Unknown]
  - Hospitalisation [Unknown]
  - Localised oedema [Unknown]

NARRATIVE: CASE EVENT DATE: 201411
